FAERS Safety Report 21390729 (Version 1)
Quarter: 2022Q3

REPORT INFORMATION
  Report Type: Spontaneous
  Country: US (occurrence: US)
  Receive Date: 20220929
  Receipt Date: 20220929
  Transmission Date: 20221026
  Serious: No
  Sender: FDA-Public Use
  Company Number: US-PFIZER INC-202201193627

PATIENT
  Age: 62 Year
  Sex: Female

DRUGS (1)
  1. IBRANCE [Suspect]
     Active Substance: PALBOCICLIB
     Dosage: 100 MG, CYCLIC, (TAKE 1 TABLET (100 MG) DAILY ON DAYS 1 THROUGH 21 THEN 7 DAYS OFF)

REACTIONS (4)
  - Vomiting [Unknown]
  - Alopecia [Unknown]
  - Fatigue [Unknown]
  - Cough [Unknown]
